FAERS Safety Report 7632761-2 (Version None)
Quarter: 2011Q3

REPORT INFORMATION
  Report Type: 
  Country: None (occurrence: None)
  Receive Date: 20110725
  Receipt Date: 20110104
  Transmission Date: 20111222
  Serious: Yes (Other)
  Sender: FDA-Public Use
  Company Number: US-BRISTOL-MYERS SQUIBB COMPANY-15470339

PATIENT
  Age: 41 Year
  Sex: Female
  Weight: 77 kg

DRUGS (2)
  1. WARFARIN SODIUM [Suspect]
     Indication: THROMBOSIS
  2. FERROUS SULFATE TAB [Concomitant]

REACTIONS (1)
  - INTERNATIONAL NORMALISED RATIO DECREASED [None]
